FAERS Safety Report 24437337 (Version 1)
Quarter: 2024Q4

REPORT INFORMATION
  Report Type: Spontaneous
  Country: US (occurrence: US)
  Receive Date: 20241015
  Receipt Date: 20241015
  Transmission Date: 20250115
  Serious: No
  Sender: BAYER HEALTHCARE LLC
  Company Number: US-BAYER-2024A144158

PATIENT
  Age: 89 Year
  Sex: Female

DRUGS (3)
  1. ASTEPRO [Suspect]
     Active Substance: AZELASTINE HYDROCHLORIDE
     Indication: Hypersensitivity
     Dosage: ONE SPRAY IN RIGHT SIDE OF THE NOSTRIL
     Dates: start: 202408, end: 202408
  2. ASTEPRO [Suspect]
     Active Substance: AZELASTINE HYDROCHLORIDE
     Indication: Nasopharyngitis
  3. Vicks [Concomitant]

REACTIONS (3)
  - Ageusia [Not Recovered/Not Resolved]
  - Anosmia [Not Recovered/Not Resolved]
  - Dysphonia [Not Recovered/Not Resolved]

NARRATIVE: CASE EVENT DATE: 20240801
